FAERS Safety Report 9760165 (Version 2)
Quarter: 2014Q1

REPORT INFORMATION
  Report Type: Spontaneous
  Country: US (occurrence: US)
  Receive Date: 20131216
  Receipt Date: 20140328
  Transmission Date: 20141002
  Serious: No
  Sender: FDA-Public Use
  Company Number: US-009507513-1311USA000345

PATIENT
  Age: 16 Year
  Sex: Female
  Weight: 118.37 kg

DRUGS (1)
  1. NEXPLANON [Suspect]
     Indication: CONTRACEPTION
     Dosage: 68 MG/3 YEAR IMPLANT
     Route: 059
     Dates: start: 20130606, end: 20131031

REACTIONS (8)
  - Device kink [Recovered/Resolved]
  - Menstruation irregular [Unknown]
  - Metrorrhagia [Unknown]
  - Device breakage [Recovered/Resolved]
  - Device difficult to use [Recovered/Resolved]
  - Implant site fibrosis [Unknown]
  - Device dislocation [Recovered/Resolved]
  - Obesity [Unknown]
